FAERS Safety Report 20684068 (Version 1)
Quarter: 2022Q2

REPORT INFORMATION
  Report Type: Spontaneous
  Country: JP (occurrence: JP)
  Receive Date: 20220407
  Receipt Date: 20220407
  Transmission Date: 20220721
  Serious: Yes (Other)
  Sender: FDA-Public Use
  Company Number: JP-MSD-M2022-13594

PATIENT
  Sex: Male

DRUGS (3)
  1. KEYTRUDA [Suspect]
     Active Substance: PEMBROLIZUMAB
     Indication: Renal cell carcinoma stage IV
     Dosage: 200 MILLIGRAM, Q3W
     Route: 041
     Dates: start: 202201, end: 202203
  2. AXITINIB [Concomitant]
     Active Substance: AXITINIB
     Indication: Renal cell carcinoma stage IV
     Dosage: UNK
     Route: 065
     Dates: start: 202201, end: 202202
  3. AXITINIB [Concomitant]
     Active Substance: AXITINIB
     Dosage: UNK
     Route: 065
     Dates: start: 2022, end: 2022

REACTIONS (3)
  - Stomatitis [Recovering/Resolving]
  - Stomatitis [Recovering/Resolving]
  - Stomatitis [Not Recovered/Not Resolved]

NARRATIVE: CASE EVENT DATE: 20220101
